FAERS Safety Report 5131455-5 (Version None)
Quarter: 2006Q4

REPORT INFORMATION
  Report Type: 
  Country: None (occurrence: None)
  Receive Date: 20061020
  Receipt Date: 20060823
  Transmission Date: 20070319
  Serious: Yes (Other)
  Sender: FDA-Public Use
  Company Number: PHFR2006GB02648

PATIENT
  Age: 55 Year
  Sex: Female

DRUGS (5)
  1. ESTRADERM [Suspect]
     Indication: HORMONE REPLACEMENT THERAPY
     Dosage: 50MCG DAILY
     Route: 062
  2. ESTRADERM [Suspect]
     Dosage: 100MCG DAILY
     Route: 062
  3. ALENDRONIC ACID [Concomitant]
     Indication: OSTEOPOROSIS
     Dosage: 70 MG, QW
     Route: 048
  4. ADCAL-D3 [Concomitant]
     Dosage: 1 BID
     Route: 048
  5. SELENIUM-ACE [Concomitant]

REACTIONS (6)
  - BLOOD OESTROGEN DECREASED [None]
  - FALL [None]
  - FIBROMYALGIA [None]
  - MULTIPLE FRACTURES [None]
  - OSTEOPOROSIS [None]
  - WRIST FRACTURE [None]
